FAERS Safety Report 20109374 (Version 1)
Quarter: 2021Q4

REPORT INFORMATION
  Report Type: Spontaneous
  Country: US (occurrence: US)
  Receive Date: 20211124
  Receipt Date: 20211124
  Transmission Date: 20220303
  Serious: No
  Sender: FDA-Public Use
  Company Number: US-BAYER-2021A255512

PATIENT
  Age: 66 Year
  Sex: Male

DRUGS (4)
  1. ADEMPAS [Suspect]
     Active Substance: RIOCIGUAT
     Dosage: UNK
     Dates: start: 202111
  2. PACERONE [Concomitant]
     Active Substance: AMIODARONE HYDROCHLORIDE
     Dosage: UNK
  3. TYVASO [Concomitant]
     Active Substance: TREPROSTINIL
     Dosage: UNK
  4. TYSABRI [Concomitant]
     Active Substance: NATALIZUMAB
     Dosage: UNK

REACTIONS (2)
  - Peripheral swelling [None]
  - Pain in extremity [None]

NARRATIVE: CASE EVENT DATE: 20211101
